FAERS Safety Report 7398774-3 (Version None)
Quarter: 2011Q2

REPORT INFORMATION
  Report Type: 
  Country: None (occurrence: None)
  Receive Date: 20110401
  Receipt Date: 20110401
  Transmission Date: 20111010
  Serious: Yes (Other)
  Sender: FDA-Public Use
  Company Number: None

PATIENT
  Age: 60 Year
  Sex: Female
  Weight: 58.9676 kg

DRUGS (1)
  1. CEDAX [Suspect]
     Indication: EAR INFECTION
     Dosage: 1 CAPSULE X 7 DAYS DAILY PO
     Route: 048
     Dates: start: 20110302, end: 20110308

REACTIONS (4)
  - CLOSTRIDIUM TEST POSITIVE [None]
  - DIARRHOEA [None]
  - GASTROINTESTINAL PAIN [None]
  - URINARY TRACT INFECTION [None]
